FAERS Safety Report 7295187-X (Version None)
Quarter: 2011Q1

REPORT INFORMATION
  Report Type: 
  Country: None (occurrence: None)
  Receive Date: 20110216
  Receipt Date: 20101118
  Transmission Date: 20110831
  Serious: No
  Sender: FDA-Public Use
  Company Number: A0893235A

PATIENT
  Age: 56 Year
  Sex: Female

DRUGS (9)
  1. ZANAFLEX [Concomitant]
  2. AMITRIPTYLINE [Concomitant]
  3. THEOPHYLLINE [Concomitant]
  4. STOOL SOFTENER [Concomitant]
  5. MORPHINE SULFATE [Concomitant]
  6. POTASSIUM [Concomitant]
  7. IRON [Concomitant]
  8. VOTRIENT [Suspect]
     Indication: RENAL CANCER
     Dosage: 800MG PER DAY
     Route: 048
     Dates: start: 20101112
  9. NEURONTIN [Concomitant]

REACTIONS (1)
  - HEADACHE [None]
